FAERS Safety Report 19464487 (Version 7)
Quarter: 2022Q3

REPORT INFORMATION
  Report Type: Report from Study
  Country: US (occurrence: US)
  Receive Date: 20210626
  Receipt Date: 20220813
  Transmission Date: 20221027
  Serious: Yes (Other)
  Sender: FDA-Public Use
  Company Number: US-NOVARTISTESTPH-NVSC2021US137974

PATIENT
  Sex: Male
  Weight: 74.84 kg

DRUGS (4)
  1. MAYZENT [Suspect]
     Active Substance: SIPONIMOD
     Indication: Multiple sclerosis
     Dosage: 2 MG, QD
     Route: 065
  2. MAYZENT [Suspect]
     Active Substance: SIPONIMOD
     Dosage: 2 MG, QD
     Route: 065
     Dates: start: 20210621
  3. MAYZENT [Suspect]
     Active Substance: SIPONIMOD
     Dosage: 2 MG, QD
     Route: 048
     Dates: start: 20220208, end: 20220401
  4. MAYZENT [Suspect]
     Active Substance: SIPONIMOD
     Dosage: UNK
     Route: 065

REACTIONS (7)
  - Nephrolithiasis [Unknown]
  - Multiple sclerosis [Unknown]
  - Urinary tract infection [Unknown]
  - Waist circumference increased [Unknown]
  - Oedema peripheral [Recovered/Resolved]
  - Dysstasia [Unknown]
  - Peripheral swelling [Recovered/Resolved]
